FAERS Safety Report 5278308-X (Version None)
Quarter: 2007Q1

REPORT INFORMATION
  Report Type: 
  Country: None (occurrence: None)
  Receive Date: 20070322
  Receipt Date: 20070308
  Transmission Date: 20070707
  Serious: Yes (Hospitalization)
  Sender: FDA-Public Use
  Company Number: 430005M07USA

PATIENT
  Age: 54 Year
  Sex: Female

DRUGS (1)
  1. NOVANTRONE [Suspect]
     Indication: MULTIPLE SCLEROSIS

REACTIONS (4)
  - ACUTE PROMYELOCYTIC LEUKAEMIA [None]
  - ANAEMIA [None]
  - PANCYTOPENIA [None]
  - SUBDURAL HAEMATOMA [None]
